FAERS Safety Report 6155911-6 (Version None)
Quarter: 2009Q2

REPORT INFORMATION
  Report Type: 
  Country: None (occurrence: None)
  Receive Date: 20090415
  Receipt Date: 20090409
  Transmission Date: 20091009
  Serious: Yes (Death)
  Sender: FDA-Public Use
  Company Number: BE-ELI_LILLY_AND_COMPANY-BE200904002189

PATIENT
  Sex: Female
  Weight: 67 kg

DRUGS (1)
  1. GEMZAR [Suspect]
     Indication: BILE DUCT CANCER
     Dosage: 1000 MG/M2, UNKNOWN
     Route: 042
     Dates: start: 20090301

REACTIONS (1)
  - DEATH [None]
